FAERS Safety Report 17761336 (Version 1)
Quarter: 2020Q2

REPORT INFORMATION
  Report Type: Spontaneous
  Country: US (occurrence: US)
  Receive Date: 20200508
  Receipt Date: 20200508
  Transmission Date: 20200714
  Serious: Yes (Other)
  Sender: FDA-Public Use
  Company Number: US-SHIRE-US202015235

PATIENT
  Age: 65 Year
  Sex: Female

DRUGS (5)
  1. HUMIRA [Suspect]
     Active Substance: ADALIMUMAB
     Dosage: 80 MILLIGRAM, DAY 15
     Route: 058
     Dates: start: 20200206, end: 20200206
  2. PREDNISONE. [Suspect]
     Active Substance: PREDNISONE
     Indication: PRODUCT USED FOR UNKNOWN INDICATION
     Dosage: DECREASED PREDNISONE
     Route: 065
  3. HUMIRA [Suspect]
     Active Substance: ADALIMUMAB
     Indication: COLITIS ULCERATIVE
     Dosage: 40 MILLIGRAM
     Route: 058
     Dates: start: 20200123, end: 20200123
  4. 476 (MESALAZINE/MESALAMINE) [Suspect]
     Active Substance: MESALAMINE
     Indication: PRODUCT USED FOR UNKNOWN INDICATION
     Route: 065
  5. HUMIRA [Suspect]
     Active Substance: ADALIMUMAB
     Dosage: 40 MILLIGRAM, 1X/2WKS
     Route: 058
     Dates: start: 20200220

REACTIONS (28)
  - Haemorrhoids thrombosed [Unknown]
  - Depressed mood [Unknown]
  - Migraine [Unknown]
  - Diarrhoea [Unknown]
  - Loss of personal independence in daily activities [Not Recovered/Not Resolved]
  - Compression fracture [Unknown]
  - Decreased appetite [Recovering/Resolving]
  - Gastroenteritis viral [Recovered/Resolved]
  - Flatulence [Unknown]
  - Vomiting [Unknown]
  - Constipation [Recovered/Resolved]
  - Dry eye [Recovered/Resolved]
  - Pyrexia [Recovering/Resolving]
  - Injection site bruising [Recovering/Resolving]
  - Abnormal faeces [Unknown]
  - Hypersensitivity [Unknown]
  - Peripheral swelling [Unknown]
  - Joint swelling [Unknown]
  - Hyperhidrosis [Unknown]
  - Nausea [Unknown]
  - Abdominal pain [Not Recovered/Not Resolved]
  - Rectal haemorrhage [Unknown]
  - Haematochezia [Unknown]
  - Frequent bowel movements [Unknown]
  - Musculoskeletal stiffness [Unknown]
  - Foreign body in gastrointestinal tract [Unknown]
  - Muscle spasms [Unknown]
  - Fatigue [Unknown]

NARRATIVE: CASE EVENT DATE: 2020
